FAERS Safety Report 15518139 (Version 1)
Quarter: 2018Q4

REPORT INFORMATION
  Report Type: Spontaneous
  Country: CY (occurrence: CY)
  Receive Date: 20181017
  Receipt Date: 20181017
  Transmission Date: 20190205
  Serious: Yes (Other)
  Sender: FDA-Public Use
  Company Number: CY-PFIZER INC-2018407899

PATIENT

DRUGS (1)
  1. GENOTROPIN [Suspect]
     Active Substance: SOMATROPIN
     Indication: JOINT DISLOCATION
     Dosage: UNK

REACTIONS (4)
  - Accident [Unknown]
  - Suicidal ideation [Unknown]
  - Pain [Unknown]
  - Product use in unapproved indication [Unknown]
